FAERS Safety Report 5699971-5 (Version None)
Quarter: 2008Q2

REPORT INFORMATION
  Report Type: 
  Country: None (occurrence: None)
  Receive Date: 20080410
  Receipt Date: 20080403
  Transmission Date: 20081010
  Serious: Yes (Hospitalization)
  Sender: FDA-Public Use
  Company Number: US-KINGPHARMUSA00001-K200800393

PATIENT

DRUGS (4)
  1. ALTACE [Suspect]
     Indication: ESSENTIAL HYPERTENSION
     Route: 048
     Dates: end: 20080202
  2. LASILIX                            /00032601/ [Suspect]
     Indication: ESSENTIAL HYPERTENSION
     Route: 048
     Dates: end: 20080202
  3. COZAAR [Suspect]
     Indication: ESSENTIAL HYPERTENSION
     Route: 048
     Dates: end: 20080202
  4. UNSPECIFIED DRUG [Concomitant]
     Indication: IRON DEFICIENCY

REACTIONS (2)
  - BUNDLE BRANCH BLOCK [None]
  - RENAL FAILURE [None]
